FAERS Safety Report 6144715-6 (Version None)
Quarter: 2009Q2

REPORT INFORMATION
  Report Type: 
  Country: None (occurrence: None)
  Receive Date: 20090406
  Receipt Date: 20090331
  Transmission Date: 20091009
  Serious: Yes (Death)
  Sender: FDA-Public Use
  Company Number: US-ROXANE LABORATORIES, INC.-2009-RO-00320RO

PATIENT

DRUGS (2)
  1. ALPRAZOLAM [Suspect]
  2. METHADONE [Suspect]

REACTIONS (1)
  - DEATH [None]
